FAERS Safety Report 8527408 (Version 2)
Quarter: 2013Q1

REPORT INFORMATION
  Report Type: Spontaneous
  Country: US (occurrence: US)
  Receive Date: 20120424
  Receipt Date: 20130326
  Transmission Date: 20140127
  Serious: Yes (Hospitalization)
  Sender: FDA-Public Use
  Company Number: US-BRISTOL-MYERS SQUIBB COMPANY-16521247

PATIENT
  Age: 19 Year
  Sex: Female

DRUGS (1)
  1. ABILIFY TABS 10 MG [Suspect]
     Dates: end: 20120226

REACTIONS (5)
  - Pregnancy [Recovered/Resolved]
  - Tremor [Recovering/Resolving]
  - Vomiting [Recovering/Resolving]
  - Loss of consciousness [Recovering/Resolving]
  - Normal newborn [Unknown]
